FAERS Safety Report 15008308 (Version 1)
Quarter: 2018Q2

REPORT INFORMATION
  Report Type: Spontaneous
  Country: GR (occurrence: GR)
  Receive Date: 20180613
  Receipt Date: 20180613
  Transmission Date: 20180711
  Serious: Yes (Other)
  Sender: FDA-Public Use
  Company Number: GR-BAUSCH-BL-2018-016644

PATIENT
  Age: 44 Year
  Sex: Male
  Weight: 115 kg

DRUGS (4)
  1. ENALAPRIL MALEATE. [Suspect]
     Active Substance: ENALAPRIL MALEATE
     Indication: CARDIAC FAILURE CHRONIC
     Route: 048
  2. EPLERENONE. [Suspect]
     Active Substance: EPLERENONE
     Indication: CARDIAC FAILURE CHRONIC
     Route: 048
  3. METOPROLOL. [Suspect]
     Active Substance: METOPROLOL
     Indication: CARDIAC FAILURE CHRONIC
     Route: 065
  4. ATORVASTATIN [Suspect]
     Active Substance: ATORVASTATIN
     Indication: CARDIAC FAILURE CHRONIC
     Route: 065

REACTIONS (1)
  - Drug ineffective [Unknown]
